FAERS Safety Report 11288695 (Version 1)
Quarter: 2015Q3

REPORT INFORMATION
  Report Type: Spontaneous
  Country: US (occurrence: US)
  Receive Date: 20150721
  Receipt Date: 20150721
  Transmission Date: 20151125
  Serious: No
  Sender: FDA-Public Use
  Company Number: US-UNITED THERAPEUTICS-UNT-2015-004011

PATIENT
  Age: 19 Year
  Sex: Female
  Weight: 79.37 kg

DRUGS (4)
  1. REMODULIN [Suspect]
     Active Substance: TREPROSTINIL
     Dosage: 0.04938 ?G/KG/MIN, CONTINUING
     Route: 058
     Dates: start: 20140919
  2. ADCIRCA [Concomitant]
     Active Substance: TADALAFIL
  3. REMODULIN [Suspect]
     Active Substance: TREPROSTINIL
     Indication: PULMONARY ARTERIAL HYPERTENSION
     Dosage: 0.04938 ?G/KG/MIN, CONTINUING
     Route: 058
     Dates: start: 20140917
  4. REMODULIN [Suspect]
     Active Substance: TREPROSTINIL
     Dosage: 0.0535 ?G/KG/MIN, CONTINUING
     Route: 058
     Dates: start: 20140918

REACTIONS (12)
  - Infusion site discolouration [Unknown]
  - Infusion site oedema [Unknown]
  - Diarrhoea [Unknown]
  - Infusion site haemorrhage [Unknown]
  - Infusion site erythema [Unknown]
  - Chills [Recovered/Resolved]
  - Oropharyngeal pain [Recovered/Resolved]
  - Viral infection [Unknown]
  - Device issue [Unknown]
  - Infusion site pain [Unknown]
  - Infusion site warmth [Unknown]
  - Pyrexia [Recovered/Resolved]

NARRATIVE: CASE EVENT DATE: 20150407
